FAERS Safety Report 5205658-5 (Version None)
Quarter: 2007Q1

REPORT INFORMATION
  Report Type: 
  Country: None (occurrence: None)
  Receive Date: 20070105
  Receipt Date: 20070105
  Transmission Date: 20070707
  Serious: Yes (Life-Threatening, Hospitalization)
  Sender: FDA-Public Use
  Company Number: None

PATIENT
  Sex: Female
  Weight: 72.7 kg

DRUGS (26)
  1. HEPARIN [Suspect]
     Indication: THROMBOSIS PROPHYLAXIS
     Dosage: INFUSION 700-1000 U/HR OR 5000 UNITS Q 8-12 HRS
     Dates: start: 20060718, end: 20060802
  2. ACETAMINOPHEN [Concomitant]
  3. AMIODARONE HCL [Concomitant]
  4. ASPIRIN [Concomitant]
  5. BISACODYL [Concomitant]
  6. CHLORAL HYDRATE [Concomitant]
  7. DOCUSATE [Concomitant]
  8. ENALAPRIL MALEATE [Concomitant]
  9. FUROSEMIDE [Concomitant]
  10. HYDRALAZINE HCL [Concomitant]
  11. LANSOPRAZOLE [Concomitant]
  12. LORAZEPAM [Concomitant]
  13. MAALOX FAST BLOCKER [Concomitant]
  14. MAGNESIUM SULFATE [Concomitant]
  15. METOCLOPRAMIDE [Concomitant]
  16. METOPROLOL SUCCINATE [Concomitant]
  17. ONDANSETRON [Concomitant]
  18. PROMETHAZINE [Concomitant]
  19. SIMETHICONE [Concomitant]
  20. TEMAZEPAM [Concomitant]
  21. SULFAMETHOXAZOLE + TRIMETHOPRIM [Concomitant]
  22. INSULIN [Concomitant]
  23. DILTIAZEM HCL [Concomitant]
  24. POTASSIUM CHLORIDE [Concomitant]
  25. MORPHINE [Concomitant]
  26. DIPHENHYDRAMINE HCL [Concomitant]

REACTIONS (2)
  - HEPARIN-INDUCED THROMBOCYTOPENIA [None]
  - OCCULT BLOOD POSITIVE [None]
